FAERS Safety Report 16306480 (Version 3)
Quarter: 2021Q2

REPORT INFORMATION
  Report Type: Spontaneous
  Country: US (occurrence: US)
  Receive Date: 20190513
  Receipt Date: 20210423
  Transmission Date: 20210716
  Serious: Yes (Death, Other)
  Sender: FDA-Public Use
  Company Number: US-ASTRAZENECA-2019SE67186

PATIENT
  Age: 15015 Day
  Sex: Male

DRUGS (61)
  1. PANTOPRAZOLE [Suspect]
     Active Substance: PANTOPRAZOLE
     Indication: GASTROOESOPHAGEAL REFLUX DISEASE
     Route: 065
     Dates: start: 201212, end: 201301
  2. TOPAMAX [Concomitant]
     Active Substance: TOPIRAMATE
     Dates: start: 20100204
  3. SINGULAIR [Concomitant]
     Active Substance: MONTELUKAST SODIUM
     Dates: start: 20110427
  4. VOLTAREN [Concomitant]
     Active Substance: DICLOFENAC SODIUM
     Dates: start: 20111024
  5. KETOCONAZOLE. [Concomitant]
     Active Substance: KETOCONAZOLE
     Dosage: 2% CR
     Dates: start: 20130412
  6. AMIODARONE HCL [Concomitant]
     Active Substance: AMIODARONE HYDROCHLORIDE
     Dates: start: 20130422
  7. TESTOSTERON [Concomitant]
     Active Substance: TESTOSTERONE
     Dosage: CYP 2, 2 ML
     Dates: start: 20140501
  8. CEFDINIR. [Concomitant]
     Active Substance: CEFDINIR
     Dates: start: 20141003
  9. GEMFIBROZIL. [Concomitant]
     Active Substance: GEMFIBROZIL
     Dates: start: 20150112
  10. GABAPENTIN. [Concomitant]
     Active Substance: GABAPENTIN
     Dates: start: 20101211
  11. DOXYCYCLINE HYCLAT [Concomitant]
     Dates: start: 20110209
  12. CLINDAMYCIN HCL [Concomitant]
     Active Substance: CLINDAMYCIN HYDROCHLORIDE
     Dates: start: 20110805
  13. PROMETHAZINE [Concomitant]
     Active Substance: PROMETHAZINE HYDROCHLORIDE
     Dates: start: 20130812
  14. AZITHROMYCIN ANHYDROUS. [Concomitant]
     Active Substance: AZITHROMYCIN ANHYDROUS
     Dosage: 500 M
     Dates: start: 20140930
  15. NEXIUM [Suspect]
     Active Substance: ESOMEPRAZOLE MAGNESIUM
     Indication: GASTROOESOPHAGEAL REFLUX DISEASE
     Route: 048
     Dates: start: 200101, end: 201703
  16. NEXIUM [Suspect]
     Active Substance: ESOMEPRAZOLE MAGNESIUM
     Indication: GASTROOESOPHAGEAL REFLUX DISEASE
     Route: 048
     Dates: start: 201103, end: 201702
  17. NEXIUM [Suspect]
     Active Substance: ESOMEPRAZOLE MAGNESIUM
     Indication: GASTROOESOPHAGEAL REFLUX DISEASE
     Route: 048
     Dates: start: 20110302
  18. OMEPRAZOLE. [Suspect]
     Active Substance: OMEPRAZOLE
     Indication: GASTROOESOPHAGEAL REFLUX DISEASE
     Route: 065
     Dates: start: 201212, end: 201304
  19. OMEPRAZOLE. [Suspect]
     Active Substance: OMEPRAZOLE
     Indication: GASTROOESOPHAGEAL REFLUX DISEASE
     Route: 048
     Dates: start: 20121227
  20. ATENOLOL. [Concomitant]
     Active Substance: ATENOLOL
     Indication: HYPERTENSION
     Dates: start: 201102, end: 201703
  21. ATENOLOL. [Concomitant]
     Active Substance: ATENOLOL
     Dates: start: 20110201
  22. MUPIROCIN. [Concomitant]
     Active Substance: MUPIROCIN
     Dosage: 2% OINTM 22 GM
     Dates: start: 20130412
  23. COLLAGENASE SANTYL [Concomitant]
     Active Substance: COLLAGENASE CLOSTRIDIUM HISTOLYTICUM
     Dates: start: 20151014
  24. RANITIDINE. [Concomitant]
     Active Substance: RANITIDINE
     Dates: start: 20151231
  25. ARIPIPRAZOLE. [Concomitant]
     Active Substance: ARIPIPRAZOLE
     Dates: start: 20170301
  26. TRICOR [Concomitant]
     Active Substance: FENOFIBRATE
     Indication: BLOOD DISORDER
     Dates: start: 201101, end: 201411
  27. SPIRIVA [Concomitant]
     Active Substance: TIOTROPIUM BROMIDE MONOHYDRATE
     Indication: MUSCLE RELAXANT THERAPY
     Dates: start: 201102, end: 201703
  28. BETAMETHASONE. [Concomitant]
     Active Substance: BETAMETHASONE
     Dates: start: 20110105
  29. ABILIFY [Concomitant]
     Active Substance: ARIPIPRAZOLE
     Dates: start: 20110228
  30. OXYCODONE?ACETAMIN [Concomitant]
     Dates: start: 20120504
  31. HYDROC/APAP [Concomitant]
     Dosage: 5/500
     Dates: start: 20120823
  32. MONTELUKAST SOD [Concomitant]
     Active Substance: MONTELUKAST SODIUM
     Dates: start: 20120901
  33. MORPHINE SULF [Concomitant]
     Active Substance: MORPHINE SULFATE
     Dates: start: 20120907
  34. POTASSIUM CL [Concomitant]
     Active Substance: POTASSIUM CHLORIDE
     Dates: start: 20130422
  35. BUSPIRONE HCL [Concomitant]
     Active Substance: BUSPIRONE HYDROCHLORIDE
     Dates: start: 20151007
  36. BACLOFEN. [Concomitant]
     Active Substance: BACLOFEN
     Dates: start: 20151014
  37. NEXIUM [Suspect]
     Active Substance: ESOMEPRAZOLE MAGNESIUM
     Indication: GASTROOESOPHAGEAL REFLUX DISEASE
     Dosage: GENERIC
     Route: 048
     Dates: start: 20150302
  38. PANTOPRAZOLE [Suspect]
     Active Substance: PANTOPRAZOLE
     Indication: GASTROOESOPHAGEAL REFLUX DISEASE
     Route: 065
     Dates: start: 20121204
  39. CLONAZEPAM. [Concomitant]
     Active Substance: CLONAZEPAM
     Dates: start: 20101208
  40. TETRACYCLINE [Concomitant]
     Active Substance: TETRACYCLINE
     Dates: start: 20110201
  41. TOPIRAMATE. [Concomitant]
     Active Substance: TOPIRAMATE
     Dates: start: 20110201
  42. VENTOLIN HFA [Concomitant]
     Active Substance: ALBUTEROL SULFATE
     Dates: start: 20110425
  43. LEVOTHYROXINE. [Concomitant]
     Active Substance: LEVOTHYROXINE
     Dates: start: 20131002
  44. CIALIS [Concomitant]
     Active Substance: TADALAFIL
     Dates: start: 20140418
  45. FENOFIBRATE. [Concomitant]
     Active Substance: FENOFIBRATE
     Dates: start: 20141211
  46. SUMATRIPTAN SUCC [Concomitant]
     Active Substance: SUMATRIPTAN SUCCINATE
     Dates: start: 20110713
  47. GENTAMICIN. [Concomitant]
     Active Substance: GENTAMICIN
     Dosage: 0.1% CR 15 GM
     Dates: start: 20120409
  48. CHLORHEXIDINE [Concomitant]
     Active Substance: CHLORHEXIDINE
     Dosage: 0.12 473 ML
     Dates: start: 20120817
  49. SEROQUEL XR [Concomitant]
     Active Substance: QUETIAPINE FUMARATE
     Dates: start: 20120803
  50. ROPINIROLE HCL [Concomitant]
     Active Substance: ROPINIROLE HYDROCHLORIDE
     Dates: start: 20130128
  51. POLYETHYLENE GLYCOL [Concomitant]
     Active Substance: POLYETHYLENE GLYCOLS
     Dates: start: 20160102
  52. NEXIUM [Suspect]
     Active Substance: ESOMEPRAZOLE MAGNESIUM
     Indication: GASTROOESOPHAGEAL REFLUX DISEASE
     Dosage: GENERIC
     Route: 048
     Dates: start: 201503, end: 201504
  53. LISINOPRIL. [Concomitant]
     Active Substance: LISINOPRIL
     Indication: HYPERTENSION
     Dates: start: 201102, end: 201703
  54. VITAMIN D2 [Concomitant]
     Active Substance: ERGOCALCIFEROL
     Dates: start: 20110930
  55. IMITREX [Concomitant]
     Active Substance: SUMATRIPTAN SUCCINATE
     Dates: start: 20150303
  56. LYRICA [Concomitant]
     Active Substance: PREGABALIN
     Dates: start: 20151014
  57. SERTRALINE HCL [Concomitant]
     Active Substance: SERTRALINE HYDROCHLORIDE
     Dates: start: 20110425
  58. CIPROFLOXACIN HCL [Concomitant]
     Active Substance: CIPROFLOXACIN HYDROCHLORIDE
     Dates: start: 20110805
  59. ADVAIR HFA [Concomitant]
     Active Substance: FLUTICASONE PROPIONATE\SALMETEROL XINAFOATE
     Dosage: 250/50
     Dates: start: 20111110
  60. ZOLPIDEM TARTRATE. [Concomitant]
     Active Substance: ZOLPIDEM TARTRATE
     Dates: start: 20120510
  61. PROAIR HFA [Concomitant]
     Active Substance: ALBUTEROL SULFATE
     Dates: start: 20130424

REACTIONS (4)
  - Renal tubular necrosis [Unknown]
  - Acute kidney injury [Unknown]
  - Renal failure [Unknown]
  - Chronic obstructive pulmonary disease [Fatal]

NARRATIVE: CASE EVENT DATE: 20080410
